FAERS Safety Report 12007389 (Version 2)
Quarter: 2016Q2

REPORT INFORMATION
  Report Type: Spontaneous
  Country: IT (occurrence: ES)
  Receive Date: 20160204
  Receipt Date: 20160407
  Transmission Date: 20160815
  Serious: Yes (Death, Other)
  Sender: FDA-Public Use
  Company Number: IT-BAXTER-2016BAX003937

PATIENT
  Age: 49 Year
  Sex: Male

DRUGS (20)
  1. EPIRUBICIN [Suspect]
     Active Substance: EPIRUBICIN
     Indication: NO THERAPEUTIC RESPONSE
     Route: 065
     Dates: start: 201311, end: 201402
  2. EPIRUBICIN [Suspect]
     Active Substance: EPIRUBICIN
     Indication: SOFT TISSUE SARCOMA
  3. G-CSF [Suspect]
     Active Substance: GRANULOCYTE COLONY-STIMULATING FACTOR NOS
     Route: 065
     Dates: start: 200906, end: 200911
  4. TRABECTEDIN [Suspect]
     Active Substance: TRABECTEDIN
     Indication: METASTASES TO LUNG
     Dosage: CONTINUED FOR 17 CONSECUTIVE CYCLES
     Route: 041
     Dates: start: 201006, end: 201107
  5. HOLOXAN [Suspect]
     Active Substance: IFOSFAMIDE
     Indication: METASTASES TO LUNG
     Dosage: 12G/M^2 (2 G/M2/DAY ON DAYS 1-6) EVERY 3 WEEKS
     Route: 065
     Dates: start: 200906, end: 200911
  6. G-CSF [Suspect]
     Active Substance: GRANULOCYTE COLONY-STIMULATING FACTOR NOS
     Indication: SUPPORTIVE CARE
     Route: 065
  7. TRABECTEDIN [Suspect]
     Active Substance: TRABECTEDIN
     Indication: MALIGNANT NEOPLASM PROGRESSION
     Dosage: CONTINUED FOR 10 CYCLES
     Route: 041
     Dates: start: 201111
  8. GEMCITABINE [Suspect]
     Active Substance: GEMCITABINE\GEMCITABINE HYDROCHLORIDE
     Indication: SOFT TISSUE SARCOMA
  9. TRABECTEDIN [Suspect]
     Active Substance: TRABECTEDIN
     Indication: SYNOVIAL SARCOMA RECURRENT
     Route: 065
     Dates: start: 201207
  10. DOXORUBICIN [Suspect]
     Active Substance: DOXORUBICIN
     Indication: PRODUCT USED FOR UNKNOWN INDICATION
     Route: 065
  11. HOLOXAN [Suspect]
     Active Substance: IFOSFAMIDE
     Indication: NO THERAPEUTIC RESPONSE
  12. GEMCITABINE [Suspect]
     Active Substance: GEMCITABINE\GEMCITABINE HYDROCHLORIDE
     Indication: DISEASE RECURRENCE
     Route: 065
     Dates: start: 201002
  13. DACARBAZINE. [Suspect]
     Active Substance: DACARBAZINE
     Indication: SOFT TISSUE SARCOMA
  14. PAZOPANIB [Suspect]
     Active Substance: PAZOPANIB
     Indication: SOFT TISSUE SARCOMA
     Route: 065
     Dates: start: 201307, end: 201311
  15. TRABECTEDIN [Suspect]
     Active Substance: TRABECTEDIN
     Indication: SOFT TISSUE SARCOMA
     Route: 065
     Dates: start: 201304
  16. HOLOXAN [Suspect]
     Active Substance: IFOSFAMIDE
     Indication: SYNOVIAL SARCOMA
     Dosage: 3 GM/M2/DAY (ON DAY 1-3) EVERY 3 WEEKS
     Route: 065
  17. HOLOXAN [Suspect]
     Active Substance: IFOSFAMIDE
     Indication: SOFT TISSUE SARCOMA
     Route: 065
     Dates: start: 201311, end: 201402
  18. EPIRUBICIN [Suspect]
     Active Substance: EPIRUBICIN
     Indication: SYNOVIAL SARCOMA
     Dosage: ON DAY 1-2, EVERY 3 WEEKS
     Route: 065
  19. DACARBAZINE. [Suspect]
     Active Substance: DACARBAZINE
     Indication: DISEASE RECURRENCE
     Route: 065
     Dates: start: 201002
  20. PAZOPANIB [Suspect]
     Active Substance: PAZOPANIB
     Indication: DISEASE PROGRESSION

REACTIONS (4)
  - No therapeutic response [Not Recovered/Not Resolved]
  - Disease progression [Unknown]
  - Synovial sarcoma metastatic [Unknown]
  - Malignant neoplasm progression [Fatal]

NARRATIVE: CASE EVENT DATE: 201402
